FAERS Safety Report 8458562-3 (Version None)
Quarter: 2012Q2

REPORT INFORMATION
  Report Type: 
  Country: None (occurrence: None)
  Receive Date: 20120622
  Receipt Date: 20120618
  Transmission Date: 20120825
  Serious: Yes (Other)
  Sender: FDA-Public Use
  Company Number: BR-PFIZER INC-2012148405

PATIENT
  Age: 59 Year
  Sex: Female

DRUGS (10)
  1. SELENIUM [Concomitant]
     Dosage: UNK
  2. CENTRUM [Concomitant]
     Indication: SURGERY
     Dosage: UNK
  3. SYNTHROID [Concomitant]
     Indication: THYROID DISORDER
     Dosage: UNK
  4. ALPRAZOLAM [Concomitant]
     Dosage: UNK
     Dates: end: 20070805
  5. ALENDRONATE SODIUM [Concomitant]
     Dosage: UNK
  6. GENOTROPIN [Suspect]
     Indication: OFF LABEL USE
     Dosage: 0.8 MG, 6X/WEEK
     Route: 058
     Dates: start: 20030701, end: 20120601
  7. BENICAR [Concomitant]
     Indication: BLOOD PRESSURE INCREASED
     Dosage: UNK
  8. MAGNESIUM CHLORIDE ANHYDROUS [Concomitant]
     Indication: OSTEOARTHRITIS
     Dosage: UNK
  9. MAGNESIUM CHLORIDE ANHYDROUS [Concomitant]
     Indication: BACK PAIN
  10. DEOCIL [Concomitant]
     Dosage: UNK

REACTIONS (3)
  - PLASTIC SURGERY [None]
  - ARTHRALGIA [None]
  - BREAST CANCER [None]
